FAERS Safety Report 9849102 (Version 1)
Quarter: 2013Q4

REPORT INFORMATION
  Report Type: Spontaneous
  Country: US (occurrence: None)
  Receive Date: 20131223
  Receipt Date: 20131223
  Transmission Date: 20140711
  Serious: No
  Sender: FDA-Public Use
  Company Number: CABO-13003622

PATIENT
  Age: 71 Year
  Sex: Male

DRUGS (1)
  1. COMETRIQ (CABOZANTINIB) CAPSULE [Suspect]
     Indication: PROSTATE CANCER
     Route: 048
     Dates: start: 201309

REACTIONS (5)
  - Contusion [None]
  - Hiccups [None]
  - Fatigue [None]
  - Local swelling [None]
  - Off label use [None]
